FAERS Safety Report 13256162 (Version 1)
Quarter: 2017Q1

REPORT INFORMATION
  Report Type: Spontaneous
  Country: DK (occurrence: DK)
  Receive Date: 20170221
  Receipt Date: 20170221
  Transmission Date: 20170428
  Serious: Yes (Hospitalization)
  Sender: FDA-Public Use
  Company Number: DK-MALLINCKRODT-T201700530

PATIENT
  Age: 38 Year
  Sex: Female

DRUGS (2)
  1. ULTRA-TECHNEKOW FM [Concomitant]
     Active Substance: TECHNETIUM TC-99M SODIUM PERTECHNETATE
     Indication: SCAN MYOCARDIAL PERFUSION
     Dosage: 667 MBQ, SINGLE
     Route: 042
     Dates: start: 20170124, end: 20170124
  2. TECHNETIUM TC-99M SESTAMIBI KIT [Suspect]
     Active Substance: TECHNETIUM TC-99M SESTAMIBI
     Indication: SCAN MYOCARDIAL PERFUSION
     Dosage: 0.66 ML, SINGLE
     Route: 042
     Dates: start: 20170124, end: 20170124

REACTIONS (3)
  - Chest discomfort [Recovered/Resolved]
  - Pruritus [Recovered/Resolved]
  - Cough [Recovered/Resolved]

NARRATIVE: CASE EVENT DATE: 20170124
